FAERS Safety Report 11531542 (Version 1)
Quarter: 2015Q3

REPORT INFORMATION
  Report Type: Spontaneous
  Country: US (occurrence: US)
  Receive Date: 20150921
  Receipt Date: 20150921
  Transmission Date: 20151125
  Serious: No
  Sender: FDA-Public Use
  Company Number: PHEH2015US018166

PATIENT
  Sex: Female

DRUGS (1)
  1. SANDOSTATIN LAR DEPOT [Suspect]
     Active Substance: OCTREOTIDE ACETATE
     Indication: PRODUCT USED FOR UNKNOWN INDICATION
     Dosage: 30 MG, EVERY 28 DAYS
     Route: 030

REACTIONS (6)
  - Therapeutic response decreased [Unknown]
  - Flushing [Unknown]
  - Injection site discomfort [Unknown]
  - Fear [Unknown]
  - Injection site mass [Unknown]
  - Diarrhoea [Unknown]
